FAERS Safety Report 6126388-1 (Version None)
Quarter: 2009Q1

REPORT INFORMATION
  Report Type: 
  Country: None (occurrence: None)
  Receive Date: 20090320
  Receipt Date: 20090312
  Transmission Date: 20090719
  Serious: Yes (Hospitalization, Other)
  Sender: FDA-Public Use
  Company Number: US-BAYER-200913904NA

PATIENT
  Sex: Male

DRUGS (2)
  1. AVELOX [Suspect]
     Indication: BRONCHITIS
     Dates: start: 20090101
  2. AVELOX [Suspect]
     Dates: start: 20090101

REACTIONS (9)
  - DIPLOPIA [None]
  - EYE INFECTION [None]
  - GAIT DEVIATION [None]
  - GRIP STRENGTH DECREASED [None]
  - HALLUCINATION [None]
  - MALIGNANT MELANOMA [None]
  - MUSCULAR WEAKNESS [None]
  - TRANSIENT ISCHAEMIC ATTACK [None]
  - TREMOR [None]
